FAERS Safety Report 5816233-3 (Version None)
Quarter: 2008Q3

REPORT INFORMATION
  Report Type: 
  Country: None (occurrence: None)
  Receive Date: 20080721
  Receipt Date: 20080705
  Transmission Date: 20090109
  Serious: Yes (Congenital Anomaly)
  Sender: FDA-Public Use
  Company Number: US-JNJFOC-20080704317

PATIENT

DRUGS (2)
  1. MICONAZOLE [Suspect]
     Route: 065
  2. MICONAZOLE [Suspect]
     Indication: DRUG EXPOSURE DURING PREGNANCY
     Route: 065

REACTIONS (1)
  - HYPOPLASTIC LEFT HEART SYNDROME [None]
